FAERS Safety Report 19669325 (Version 4)
Quarter: 2021Q3

REPORT INFORMATION
  Report Type: Spontaneous
  Country: US (occurrence: US)
  Receive Date: 20210806
  Receipt Date: 20210907
  Transmission Date: 20211014
  Serious: No
  Sender: FDA-Public Use
  Company Number: US-BEH-2021134656

PATIENT
  Age: 55 Year
  Sex: Female
  Weight: 63.95 kg

DRUGS (3)
  1. HIZENTRA [Suspect]
     Active Substance: HUMAN IMMUNOGLOBULIN G
     Dosage: 10 GRAM, QOW
     Route: 058
     Dates: start: 20210713
  2. HIZENTRA [Suspect]
     Active Substance: HUMAN IMMUNOGLOBULIN G
     Dosage: 10 GRAM, QOW
     Route: 058
     Dates: start: 20210726
  3. HIZENTRA [Suspect]
     Active Substance: HUMAN IMMUNOGLOBULIN G
     Indication: IMMUNODEFICIENCY COMMON VARIABLE
     Dosage: 10 GRAM, QOW
     Route: 058
     Dates: start: 202106

REACTIONS (5)
  - Infusion site swelling [Unknown]
  - Dysphonia [Recovering/Resolving]
  - No adverse event [Unknown]
  - Insurance issue [Unknown]
  - Throat irritation [Recovering/Resolving]
